FAERS Safety Report 12559543 (Version 6)
Quarter: 2017Q1

REPORT INFORMATION
  Report Type: Spontaneous
  Country: JP (occurrence: JP)
  Receive Date: 20160715
  Receipt Date: 20170216
  Transmission Date: 20170428
  Serious: Yes (Death, Other)
  Sender: FDA-Public Use
  Company Number: JP-ROCHE-1794543

PATIENT
  Age: 56 Year
  Sex: Male

DRUGS (19)
  1. TACROLIMUS. [Suspect]
     Active Substance: TACROLIMUS
     Indication: PROPHYLAXIS AGAINST TRANSPLANT REJECTION
     Route: 048
  2. RITUXAN [Suspect]
     Active Substance: RITUXIMAB
     Route: 042
  3. MYCOPHENOLATE MOFETIL. [Suspect]
     Active Substance: MYCOPHENOLATE MOFETIL
     Indication: IMMUNOSUPPRESSION
     Route: 042
  4. SUMIFERON [Suspect]
     Active Substance: INTERFERON ALFA-N1
     Route: 065
     Dates: start: 20100115
  5. SUMIFERON [Suspect]
     Active Substance: INTERFERON ALFA-N1
     Route: 065
  6. SUMIFERON [Suspect]
     Active Substance: INTERFERON ALFA-N1
     Route: 065
  7. RIBAVIRIN. [Suspect]
     Active Substance: RIBAVIRIN
     Route: 048
     Dates: start: 20100216
  8. CICLOSPORIN [Concomitant]
     Active Substance: CYCLOSPORINE
     Indication: IMMUNOSUPPRESSION
  9. RITUXAN [Suspect]
     Active Substance: RITUXIMAB
     Indication: PROPHYLAXIS AGAINST TRANSPLANT REJECTION
     Route: 042
  10. SUMIFERON [Suspect]
     Active Substance: INTERFERON ALFA-N1
     Indication: HEPATITIS C
     Route: 065
     Dates: start: 20091229
  11. TACROLIMUS. [Suspect]
     Active Substance: TACROLIMUS
     Indication: IMMUNOSUPPRESSION
     Route: 042
  12. RIBAVIRIN. [Suspect]
     Active Substance: RIBAVIRIN
     Route: 048
  13. MYCOPHENOLATE MOFETIL. [Suspect]
     Active Substance: MYCOPHENOLATE MOFETIL
     Indication: PROPHYLAXIS AGAINST TRANSPLANT REJECTION
     Route: 042
  14. PEG-INTERFERON ALFA 2A [Suspect]
     Active Substance: PEGINTERFERON ALFA-2A
     Indication: HEPATITIS C
     Route: 065
  15. METHYLPREDNISOLONE SODIUM SUCCINATE. [Suspect]
     Active Substance: METHYLPREDNISOLONE SODIUM SUCCINATE
     Indication: IMMUNOSUPPRESSION
     Route: 065
  16. RIBAVIRIN. [Suspect]
     Active Substance: RIBAVIRIN
     Indication: HEPATITIS C
     Route: 048
     Dates: start: 20100210
  17. RIBAVIRIN. [Suspect]
     Active Substance: RIBAVIRIN
     Route: 048
     Dates: start: 20100302
  18. RIBAVIRIN. [Suspect]
     Active Substance: RIBAVIRIN
     Route: 048
  19. RIBAVIRIN. [Suspect]
     Active Substance: RIBAVIRIN
     Route: 048

REACTIONS (7)
  - White blood cell count decreased [Unknown]
  - Hepatitis C [Fatal]
  - Rash [Unknown]
  - Hepatitis cholestatic [Fatal]
  - Infection [Fatal]
  - Leukoencephalopathy [Unknown]
  - Renal impairment [Unknown]
